FAERS Safety Report 19673177 (Version 1)
Quarter: 2021Q3

REPORT INFORMATION
  Report Type: Spontaneous
  Country: US (occurrence: US)
  Receive Date: 20210809
  Receipt Date: 20210809
  Transmission Date: 20211014
  Serious: Yes (Other)
  Sender: FDA-Public Use
  Company Number: US-ACCORD-155062

PATIENT
  Age: 61 Year
  Sex: Female
  Weight: 106.59 kg

DRUGS (17)
  1. FOLIC ACID. [Concomitant]
     Active Substance: FOLIC ACID
     Dosage: STRENGTH: 1 MG
     Dates: start: 20140131
  2. HYDROCODONE BITARTRATE AND ACETAMINOPHEN [Concomitant]
     Active Substance: ACETAMINOPHEN\HYDROCODONE BITARTRATE
     Dates: start: 20151103, end: 20180108
  3. GLIPIZIDE. [Concomitant]
     Active Substance: GLIPIZIDE
     Dosage: STRENGTH: 5 MG
     Dates: start: 20160114, end: 20181018
  4. DOCETAXEL ACCORD [Suspect]
     Active Substance: DOCETAXEL
     Indication: INVASIVE DUCTAL BREAST CARCINOMA
     Dosage: NUMBER OF CYCLES: 04
     Dates: start: 20161024, end: 20161228
  5. ATORVASTATIN [Concomitant]
     Active Substance: ATORVASTATIN
     Dosage: STRENGTH: 10 MG
     Dates: start: 20171109, end: 20180517
  6. METFORMIN [Concomitant]
     Active Substance: METFORMIN HYDROCHLORIDE
     Dosage: STRENGTH: 500 MG
     Dates: start: 20171117, end: 20180116
  7. ANASTROZOLE. [Concomitant]
     Active Substance: ANASTROZOLE
     Dates: start: 20160101
  8. NORCO [Concomitant]
     Active Substance: ACETAMINOPHEN\HYDROCODONE BITARTRATE
  9. DICLOFENAC [Concomitant]
     Active Substance: DICLOFENAC
     Dosage: STRENGTH: 1 %
     Dates: start: 20180124, end: 20181210
  10. CITALOPRAM [Concomitant]
     Active Substance: CITALOPRAM HYDROBROMIDE
     Dosage: STRENGTH: 20 MG
     Dates: start: 20151020, end: 20181214
  11. NEOSAR [Suspect]
     Active Substance: CYCLOPHOSPHAMIDE
     Indication: INVASIVE DUCTAL BREAST CARCINOMA
     Dosage: NUMBER OF CYCLES: 04
  12. LEVOTHYROXINE. [Concomitant]
     Active Substance: LEVOTHYROXINE
     Dosage: STRENGTH: 125 MCG
     Dates: start: 20140131
  13. LETROZOLE. [Concomitant]
     Active Substance: LETROZOLE
     Dosage: STRENGTH: 2.5 MG
     Dates: start: 20170424, end: 20170722
  14. LISINOPRIL. [Concomitant]
     Active Substance: LISINOPRIL
     Dosage: STRENGTH: 5 MG
     Dates: start: 20171108, end: 20181004
  15. TRIAMTERENE. [Concomitant]
     Active Substance: TRIAMTERENE
  16. ANASTROZOLE. [Concomitant]
     Active Substance: ANASTROZOLE
     Dosage: STRENGTH: 1 MG
     Dates: start: 20170308, end: 20170507
  17. LISINOPRIL. [Concomitant]
     Active Substance: LISINOPRIL
     Dosage: STRENGTH: 10 MG
     Dates: start: 20180320, end: 20181214

REACTIONS (1)
  - Alopecia [Not Recovered/Not Resolved]

NARRATIVE: CASE EVENT DATE: 20170101
